FAERS Safety Report 24530945 (Version 2)
Quarter: 2025Q1

REPORT INFORMATION
  Report Type: Report from Study
  Country: US (occurrence: US)
  Receive Date: 20241021
  Receipt Date: 20250115
  Transmission Date: 20250409
  Serious: Yes (Other)
  Sender: ABBVIE
  Company Number: US-ABBVIE-5965917

PATIENT
  Age: 64 Year
  Sex: Female
  Weight: 91 kg

DRUGS (15)
  1. ARMOUR THYROID [Suspect]
     Active Substance: THYROID, PORCINE
     Indication: Thyroid disorder
     Dosage: FORM STRENGTH: 60 MILLIGRAM
     Route: 048
  2. VITAMIN D [Concomitant]
     Active Substance: VITAMIN D NOS
     Indication: Vitamin supplementation
  3. ZINC [Concomitant]
     Active Substance: ZINC
     Indication: Product used for unknown indication
  4. VITAMIN B COMPLEX [Concomitant]
     Active Substance: CYANOCOBALAMIN\DEXPANTHENOL\NIACINAMIDE\PYRIDOXINE HYDROCHLORIDE\RIBOFLAVIN 5^-PHOSPHATE SODIUM\THIA
     Indication: Vitamin supplementation
  5. HERBALS\TURMERIC [Concomitant]
     Active Substance: HERBALS\TURMERIC
     Indication: Product used for unknown indication
  6. METOPROLOL [Concomitant]
     Active Substance: METOPROLOL
     Indication: Hypertension
  7. PROLIA [Concomitant]
     Active Substance: DENOSUMAB
     Indication: Product used for unknown indication
  8. MAGNESIUM [Concomitant]
     Active Substance: MAGNESIUM
     Indication: Product used for unknown indication
  9. ZOLOFT [Concomitant]
     Active Substance: SERTRALINE HYDROCHLORIDE
     Indication: Product used for unknown indication
  10. CALCIUM [Concomitant]
     Active Substance: CALCIUM
     Indication: Product used for unknown indication
  11. ASPIRIN [Concomitant]
     Active Substance: ASPIRIN
     Indication: Product used for unknown indication
  12. PNEUMOCOCCAL VACCINE POLYVALENT NOS [Concomitant]
     Active Substance: PNEUMOCOCCAL VACCINE, POLYVALENT
     Indication: Product used for unknown indication
  13. COVID-19 vaccine [Concomitant]
     Indication: Product used for unknown indication
  14. SHINGRIX [Concomitant]
     Active Substance: RECOMBINANT VARICELLA ZOSTER VIRUS (VZV) GLYCOPROTEIN E
     Indication: Measles
  15. UNSPECIFIED INGREDIENT [Concomitant]
     Active Substance: UNSPECIFIED INGREDIENT
     Indication: Product used for unknown indication

REACTIONS (13)
  - Myelodysplastic syndrome [Recovering/Resolving]
  - Hepatic function abnormal [Recovering/Resolving]
  - Weight decreased [Recovering/Resolving]
  - Hypertension [Recovering/Resolving]
  - Feeding disorder [Recovering/Resolving]
  - Blast cell count increased [Recovering/Resolving]
  - Post procedural complication [Recovering/Resolving]
  - Renal disorder [Recovering/Resolving]
  - Hepatic enzyme increased [Recovering/Resolving]
  - Serum ferritin abnormal [Recovering/Resolving]
  - Malaise [Recovering/Resolving]
  - Anosmia [Unknown]
  - Ageusia [Unknown]

NARRATIVE: CASE EVENT DATE: 20120101
